FAERS Safety Report 8618919 (Version 3)
Quarter: 2012Q4

REPORT INFORMATION
  Report Type: 
  Country: US (occurrence: US)
  Receive Date: 20120618
  Receipt Date: 20121001
  Transmission Date: 20130627
  Serious: Yes (Hospitalization)
  Sender: FDA-Public Use
  Company Number: US-BAYER-2012-058565

PATIENT
  Age: 30 Year
  Sex: Male
  Weight: 72.56 kg

DRUGS (19)
  1. TRASYLOL [Suspect]
     Indication: MITRAL VALVE REPLACEMENT
     Dosage: 1 ml test dose, 200 ml pump prime, 200 ml/hr for one hour followed by 50ml/hr infusion
     Route: 042
     Dates: start: 20040115, end: 20040115
  2. PACKED RED BLOOD CELLS [Concomitant]
     Dosage: 300 ml, UNK
     Route: 042
     Dates: start: 20040115, end: 20040115
  3. PLASMA [Concomitant]
     Dosage: 2 u, UNK
     Route: 042
     Dates: start: 20040115, end: 20040115
  4. CRYOPRECIPITATES [Concomitant]
     Dosage: 1 u, UNK
     Route: 042
     Dates: start: 20040115, end: 20040115
  5. PLATELETS, HUMAN BLOOD [Concomitant]
     Dosage: 1 u, UNK
     Route: 042
     Dates: start: 20040115, end: 20040115
  6. HEPARIN [Concomitant]
     Dosage: 25 ml, UNK
     Route: 042
     Dates: start: 20040115, end: 20040115
  7. DOPAMINE [Concomitant]
     Dosage: 3 micrograms/kilogram/minute
     Route: 042
     Dates: start: 20040115, end: 20040115
  8. ANCEF [Concomitant]
     Dosage: 2 g, UNK
     Route: 042
     Dates: start: 20040115, end: 20040115
  9. FENTANYL [Concomitant]
     Dosage: 10 ml, UNK
     Route: 042
     Dates: start: 20040115, end: 20040115
  10. VERSED [Concomitant]
     Dosage: 10 mg, UNK
     Route: 042
     Dates: start: 20040115, end: 20040115
  11. AMIODARONE [Concomitant]
     Dosage: 150 mg bolus and 1 mg/min infusion
     Route: 042
     Dates: start: 20040115, end: 20040115
  12. NITROGLYCERINE [Concomitant]
     Route: 042
  13. INSULIN [INSULIN] [Concomitant]
     Dosage: UNK
     Dates: start: 20040115, end: 20040115
  14. NIPRIDE [Concomitant]
     Dosage: UNK
     Route: 042
     Dates: start: 20040115, end: 20040115
  15. VANCOMYCIN [Concomitant]
     Dosage: 1 g, UNK
     Route: 042
     Dates: start: 20040115, end: 20040115
  16. ZOSYN [Concomitant]
     Dosage: 3.375 g, UNK
     Route: 042
     Dates: start: 20040115, end: 20040115
  17. MANNITOL [Concomitant]
     Dosage: 25 g, UNK
     Dates: start: 20040115, end: 20040115
  18. PROTAMINE [Concomitant]
     Dosage: 500 mg, UNK
     Route: 042
     Dates: start: 20040115, end: 20040115
  19. PROTAMINE [Concomitant]
     Dosage: 400 mg via bypass
     Dates: start: 20040115, end: 20040115

REACTIONS (1)
  - Renal failure acute [Not Recovered/Not Resolved]
